FAERS Safety Report 9957046 (Version 1)
Quarter: 2014Q1

REPORT INFORMATION
  Report Type: Report from Study
  Country: US (occurrence: US)
  Receive Date: 20140304
  Receipt Date: 20140304
  Transmission Date: 20141002
  Serious: No
  Sender: FDA-Public Use
  Company Number: US-ABBVIE-13P-163-1099394-00

PATIENT
  Age: 23 Year
  Sex: Male

DRUGS (6)
  1. HUMIRA [Suspect]
     Indication: COLITIS ULCERATIVE
     Dosage: LOADING DOSE
     Dates: start: 201305
  2. HUMIRA [Suspect]
  3. LIALDA [Concomitant]
     Indication: COLITIS ULCERATIVE
     Dosage: 3 PILLS DAILY
  4. IMODIUM [Concomitant]
     Indication: DIARRHOEA
  5. ALLEGRA [Concomitant]
     Indication: HYPERSENSITIVITY
  6. PROAIR [Concomitant]
     Indication: ASTHMA

REACTIONS (1)
  - Injection site reaction [Not Recovered/Not Resolved]
